FAERS Safety Report 5062699-9 (Version None)
Quarter: 2006Q3

REPORT INFORMATION
  Report Type: 
  Country: None (occurrence: None)
  Receive Date: 20060725
  Receipt Date: 20060725
  Transmission Date: 20061208
  Serious: Yes (Hospitalization)
  Sender: FDA-Public Use
  Company Number: None

PATIENT
  Sex: Male
  Weight: 107 kg

DRUGS (5)
  1. CYCLOPHOSPHAMIDE [Suspect]
     Dates: start: 20060710
  2. DAUNORUBICIN HCL [Suspect]
     Dates: start: 20060710
  3. DEXAMETHASONE TAB [Suspect]
     Dates: start: 20060714
  4. ELSPAR [Suspect]
     Dates: start: 20060715
  5. VINCRISTINE SULFATE [Suspect]
     Dates: start: 20060715

REACTIONS (3)
  - BLOOD CULTURE POSITIVE [None]
  - MENTAL STATUS CHANGES [None]
  - PROCEDURAL COMPLICATION [None]
